FAERS Safety Report 8984211 (Version 1)
Quarter: 2012Q4

REPORT INFORMATION
  Report Type: Spontaneous
  Country: MQ (occurrence: None)
  Receive Date: 20121212
  Receipt Date: 20121212
  Transmission Date: 20130627
  Serious: Yes (Other)
  Sender: FDA-Public Use
  Company Number: MQ-1195538

PATIENT
  Age: 42 Year
  Sex: Female

DRUGS (1)
  1. OPATANOL [Suspect]

REACTIONS (3)
  - Headache [None]
  - Vertigo [None]
  - Blindness transient [None]
